FAERS Safety Report 6042237-4 (Version None)
Quarter: 2009Q1

REPORT INFORMATION
  Report Type: 
  Country: None (occurrence: None)
  Receive Date: 20090116
  Receipt Date: 20090115
  Transmission Date: 20090719
  Serious: Yes (Life-Threatening, Hospitalization)
  Sender: FDA-Public Use
  Company Number: CA-ASTRAZENECA-2009UW01276

PATIENT
  Age: 70 Year
  Sex: Male
  Weight: 79 kg

DRUGS (8)
  1. CRESTOR [Suspect]
     Route: 048
  2. FUCIDIN FILM COATED TAB [Suspect]
  3. ANDRIOL [Concomitant]
     Route: 048
  4. APO-METOPROLOL CL [Concomitant]
     Route: 048
  5. ASAPHEN EC [Concomitant]
     Route: 048
  6. EMO CORT CREAM 1% [Concomitant]
     Route: 061
  7. PREVACID SRC [Concomitant]
  8. VANCOMYCIN HYDROCHLORIDE [Concomitant]
     Route: 042

REACTIONS (10)
  - ALANINE AMINOTRANSFERASE INCREASED [None]
  - ASPARTATE AMINOTRANSFERASE INCREASED [None]
  - BILIRUBIN CONJUGATED INCREASED [None]
  - BLOOD BILIRUBIN INCREASED [None]
  - BLOOD CREATINE PHOSPHOKINASE INCREASED [None]
  - BLOOD LACTATE DEHYDROGENASE INCREASED [None]
  - DYSSTASIA [None]
  - MUSCULAR WEAKNESS [None]
  - PAIN IN EXTREMITY [None]
  - RHABDOMYOLYSIS [None]
